FAERS Safety Report 19454895 (Version 1)
Quarter: 2021Q2

REPORT INFORMATION
  Report Type: Spontaneous
  Country: BR (occurrence: BR)
  Receive Date: 20210623
  Receipt Date: 20210623
  Transmission Date: 20210717
  Serious: Yes (Other)
  Sender: FDA-Public Use
  Company Number: BR-AMERICAN REGENT INC-2021001576

PATIENT
  Sex: Female
  Weight: 70 kg

DRUGS (2)
  1. VENOFER [Suspect]
     Active Substance: IRON SUCROSE
     Dosage: 1 DOSAGE FORM/BOX/PACKAGE? FROM ONCE PER MONTH TO EVERY 3 DAYS (WHEN IRON WAS LOW)
     Route: 042
     Dates: start: 2021
  2. VENOFER [Suspect]
     Active Substance: IRON SUCROSE
     Indication: ANAEMIA
     Dosage: 1 DOSAGE FORM/BOX/PACKAGE? FROM ONCE PER MONTH TO EVERY 3 DAYS (WHEN IRON WAS LOW)
     Route: 042

REACTIONS (3)
  - Product availability issue [Unknown]
  - Maternal exposure during pregnancy [Unknown]
  - Metabolic surgery [Unknown]

NARRATIVE: CASE EVENT DATE: 2021
